FAERS Safety Report 21322619 (Version 1)
Quarter: 2022Q3

REPORT INFORMATION
  Report Type: Spontaneous
  Country: US (occurrence: US)
  Receive Date: 20220912
  Receipt Date: 20220912
  Transmission Date: 20221027
  Serious: Yes (Other)
  Sender: FDA-Public Use
  Company Number: US-MYLANLABS-2022M1092706

PATIENT
  Age: 66 Year
  Sex: Male

DRUGS (8)
  1. KETOROLAC [Suspect]
     Active Substance: KETOROLAC TROMETHAMINE
     Indication: Cystoid macular oedema
     Dosage: UNK
     Route: 061
  2. TRIAMCINOLONE [Suspect]
     Active Substance: TRIAMCINOLONE
     Indication: Cystoid macular oedema
     Dosage: 40 MILLIGRAM (SUB-TENON)
     Route: 047
  3. TRIAMCINOLONE [Suspect]
     Active Substance: TRIAMCINOLONE
     Dosage: 4 MILLIGRAM (INTRAVITREAL)
     Route: 047
  4. DEXAMETHASONE [Suspect]
     Active Substance: DEXAMETHASONE
     Indication: Cystoid macular oedema
     Dosage: 0.4 MILLIGRAM (INTRAVITREAL) IMPLANT
     Route: 047
  5. BEVACIZUMAB [Suspect]
     Active Substance: BEVACIZUMAB
     Indication: Cystoid macular oedema
     Dosage: UNK, INTRAVITREAL
     Route: 047
  6. OCRIPLASMIN [Suspect]
     Active Substance: OCRIPLASMIN
     Indication: Cystoid macular oedema
     Dosage: UNK
     Route: 065
  7. PREDNISOLONE ACETATE [Suspect]
     Active Substance: PREDNISOLONE ACETATE
     Indication: Cystoid macular oedema
     Dosage: UNK
     Route: 061
  8. RITUXIMAB [Concomitant]
     Active Substance: RITUXIMAB
     Indication: Drug therapy
     Dosage: UNK
     Route: 065

REACTIONS (2)
  - Drug ineffective [Unknown]
  - Off label use [Unknown]
